FAERS Safety Report 5780333-7 (Version None)
Quarter: 2008Q2

REPORT INFORMATION
  Report Type: 
  Country: None (occurrence: None)
  Receive Date: 20080620
  Receipt Date: 20080612
  Transmission Date: 20081010
  Serious: Yes (Hospitalization)
  Sender: FDA-Public Use
  Company Number: A0733987A

PATIENT
  Age: 49 Year
  Sex: Male
  Weight: 132.3 kg

DRUGS (6)
  1. AVANDIA [Suspect]
     Dosage: 4MG PER DAY
     Route: 048
  2. LIPITOR [Concomitant]
  3. ZETIA [Concomitant]
  4. FLEXERIL [Concomitant]
  5. LORTAB [Concomitant]
  6. MOBIC [Concomitant]

REACTIONS (1)
  - TRANSIENT ISCHAEMIC ATTACK [None]
